FAERS Safety Report 23481441 (Version 4)
Quarter: 2024Q2

REPORT INFORMATION
  Report Type: Spontaneous
  Country: GB (occurrence: GB)
  Receive Date: 20240205
  Receipt Date: 20240624
  Transmission Date: 20240715
  Serious: Yes (Hospitalization)
  Sender: FDA-Public Use
  Company Number: GB-BAXTER-2024BAX010373

PATIENT
  Sex: Female

DRUGS (23)
  1. DEXTROSE [Suspect]
     Active Substance: DEXTROSE\DEXTROSE MONOHYDRATE
     Indication: Medication dilution
     Dosage: 250 ML THRICE A DAY
     Route: 042
  2. DEXTROSE [Suspect]
     Active Substance: DEXTROSE\DEXTROSE MONOHYDRATE
     Dosage: 250 ML THRICE A DAY
     Route: 042
  3. DEXTROSE [Suspect]
     Active Substance: DEXTROSE\DEXTROSE MONOHYDRATE
     Dosage: 250 ML THRICE A DAY
     Route: 042
  4. DEXTROSE [Suspect]
     Active Substance: DEXTROSE\DEXTROSE MONOHYDRATE
     Dosage: 250 ML THRICE A DAY
     Route: 042
  5. DEXTROSE [Suspect]
     Active Substance: DEXTROSE\DEXTROSE MONOHYDRATE
     Dosage: 250 ML THRICE A DAY
     Route: 042
  6. DEXTROSE [Suspect]
     Active Substance: DEXTROSE\DEXTROSE MONOHYDRATE
     Dosage: 250 ML THRICE A DAY
     Route: 042
  7. DEXTROSE [Suspect]
     Active Substance: DEXTROSE\DEXTROSE MONOHYDRATE
     Dosage: 250 ML THRICE A DAY
     Route: 042
  8. DEXTROSE [Suspect]
     Active Substance: DEXTROSE\DEXTROSE MONOHYDRATE
     Dosage: 250 ML THRICE A DAY
     Route: 042
  9. DEXTROSE [Suspect]
     Active Substance: DEXTROSE\DEXTROSE MONOHYDRATE
     Dosage: 250 ML THRICE A DAY
     Route: 042
  10. FOSFOMYCIN [Suspect]
     Active Substance: FOSFOMYCIN
     Indication: Cystic fibrosis
     Dosage: 4 G THRICE A DAY
     Route: 042
     Dates: start: 20231130
  11. FOSFOMYCIN [Suspect]
     Active Substance: FOSFOMYCIN
     Indication: Condition aggravated
     Dosage: 2000 MG THRICE A DAY, AS A DUAL THERAPY ALONGSIDE 340 MG TOBRAMYCIN AND 2 MU COLOMYCIN
     Route: 042
  12. FOSFOMYCIN [Suspect]
     Active Substance: FOSFOMYCIN
     Indication: Infection
     Dosage: 2000 MG THRICE A DAY, AS A DUAL THERAPY ALONGSIDE 340 MG TOBRAMYCIN AND 2 MU COLOMYCIN
     Route: 042
  13. FOSFOMYCIN [Suspect]
     Active Substance: FOSFOMYCIN
     Dosage: 2000 MG THRICE A DAY, AS A DUAL THERAPY ALONGSIDE 340 MG TOBRAMYCIN AND 2 MU COLOMYCIN
     Route: 042
  14. FOSFOMYCIN [Suspect]
     Active Substance: FOSFOMYCIN
     Dosage: 2000 MG THRICE A DAY, AS A DUAL THERAPY ALONGSIDE 340 MG TOBRAMYCIN AND 2 MU COLOMYCIN
     Route: 042
  15. FOSFOMYCIN [Suspect]
     Active Substance: FOSFOMYCIN
     Dosage: 2000 MG THRICE A DAY, AS A DUAL THERAPY ALONGSIDE 2 MU COLOMYCIN
     Route: 042
  16. FOSFOMYCIN [Suspect]
     Active Substance: FOSFOMYCIN
     Dosage: 2000 MG THRICE A DAY, AS A DUAL THERAPY ALONGSIDE 2 MU COLOMYCIN
     Route: 042
  17. FOSFOMYCIN [Suspect]
     Active Substance: FOSFOMYCIN
     Dosage: 2000 MG THRICE A DAY, AS A DUAL THERAPY ALONGSIDE 2 MU COLOMYCIN
     Route: 042
  18. FOSFOMYCIN [Suspect]
     Active Substance: FOSFOMYCIN
     Dosage: 2000 MG THRICE A DAY, AS A DUAL THERAPY ALONGSIDE 2 MU COLOMYCIN
     Route: 042
  19. FOSFOMYCIN [Suspect]
     Active Substance: FOSFOMYCIN
     Dosage: 2000 MG THRICE A DAY, AS A DUAL THERAPY ALONGSIDE 2 MU COLOMYCIN
     Route: 042
  20. TOBRAMYCIN [Suspect]
     Active Substance: TOBRAMYCIN\TOBRAMYCIN SULFATE
     Dosage: 340 MG ONCE A DAY, AS A DUAL THERAPY ALONGSIDE FOSFOMYCIN
     Route: 042
  21. COLISTIN SULFATE [Suspect]
     Active Substance: COLISTIN SULFATE
     Indication: Cystic fibrosis
     Dosage: 2 MU THRICE A DAY
     Route: 042
     Dates: start: 20231130
  22. COLISTIN SULFATE [Suspect]
     Active Substance: COLISTIN SULFATE
     Indication: Condition aggravated
     Dosage: 2 MU THRICE A DAY FOR 8 DAYS
     Route: 042
  23. COLISTIN SULFATE [Suspect]
     Active Substance: COLISTIN SULFATE
     Indication: Infection
     Dosage: 2 MU THRICE A DAY, AS A DUAL THERAPY ALONGSIDE FOSFOMYCIN FOR 13 DAYS
     Route: 042

REACTIONS (5)
  - General physical health deterioration [Unknown]
  - Malaise [Unknown]
  - Product preparation error [Unknown]
  - Underdose [Unknown]
  - Product dispensing error [Unknown]
